FAERS Safety Report 6160914-1 (Version None)
Quarter: 2009Q2

REPORT INFORMATION
  Report Type: 
  Country: None (occurrence: None)
  Receive Date: 20090417
  Receipt Date: 20090417
  Transmission Date: 20091009
  Serious: Yes (Hospitalization)
  Sender: FDA-Public Use
  Company Number: None

PATIENT
  Age: 79 Year
  Sex: Female
  Weight: 80 kg

DRUGS (10)
  1. SIMVASTATIN [Suspect]
     Indication: HYPERCHOLESTEROLAEMIA
     Dosage: 80 MG DAILY PO PRIOR TO ADMISSION
     Route: 048
  2. ALBUTEROL [Concomitant]
  3. TRIAMCINLONE INHALER [Concomitant]
  4. ASPIRIN [Concomitant]
  5. MECLIZINE [Concomitant]
  6. RANITIDINE [Concomitant]
  7. VITAMIN D [Concomitant]
  8. COENZYME Q10 [Concomitant]
  9. MULTI-VITAMIN [Concomitant]
  10. INDAPAMIDE [Concomitant]

REACTIONS (3)
  - LIVER FUNCTION TEST ABNORMAL [None]
  - MYOSITIS [None]
  - RHABDOMYOLYSIS [None]
